FAERS Safety Report 8949413 (Version 2)
Quarter: 2012Q4

REPORT INFORMATION
  Report Type: 
  Country: US (occurrence: US)
  Receive Date: 20121206
  Receipt Date: 20121226
  Transmission Date: 20130627
  Serious: Yes (Other)
  Sender: FDA-Public Use
  Company Number: US-PFIZER INC-2012302131

PATIENT
  Age: 60 Year
  Sex: Female
  Weight: 56.7 kg

DRUGS (3)
  1. CELEBREX [Suspect]
     Indication: ARTHRITIS
     Dosage: UNK
  2. MELOXICAM [Suspect]
     Indication: ARTHRITIS
     Dosage: 15 mg, 1x/day
     Route: 048
  3. NORCO [Concomitant]
     Dosage: 10mg/325mg, 4x/day

REACTIONS (9)
  - Clavicle fracture [Unknown]
  - Activities of daily living impaired [Unknown]
  - Drug ineffective [Recovered/Resolved]
  - Fall [Unknown]
  - Back injury [Unknown]
  - Arthritis [Unknown]
  - Limb discomfort [Unknown]
  - Pain [Unknown]
  - Blood cholesterol increased [Unknown]
